FAERS Safety Report 7501288-0 (Version None)
Quarter: 2011Q2

REPORT INFORMATION
  Report Type: 
  Country: None (occurrence: None)
  Receive Date: 20110524
  Receipt Date: 20110510
  Transmission Date: 20111010
  Serious: Yes (Hospitalization)
  Sender: FDA-Public Use
  Company Number: CA-JNJFOC-20100806433

PATIENT
  Sex: Female
  Weight: 74.2 kg

DRUGS (2)
  1. REMICADE [Suspect]
     Route: 042
     Dates: start: 20100517
  2. REMICADE [Suspect]
     Indication: CROHN'S DISEASE
     Route: 042
     Dates: start: 20100817

REACTIONS (5)
  - NO THERAPEUTIC RESPONSE [None]
  - HAEMORRHAGE [None]
  - DIZZINESS [None]
  - IRON DEFICIENCY ANAEMIA [None]
  - FATIGUE [None]
